FAERS Safety Report 18715313 (Version 2)
Quarter: 2021Q1

REPORT INFORMATION
  Report Type: Spontaneous
  Country: FR (occurrence: FR)
  Receive Date: 20210108
  Receipt Date: 20210317
  Transmission Date: 20210419
  Serious: Yes (Hospitalization)
  Sender: FDA-Public Use
  Company Number: FR-BIOGEN-2021BI00964196

PATIENT
  Age: 31 Year
  Sex: Female
  Weight: 110 kg

DRUGS (2)
  1. TYSABRI [Suspect]
     Active Substance: NATALIZUMAB
     Indication: MULTIPLE SCLEROSIS
     Route: 042
     Dates: start: 201908, end: 20201120
  2. COPAXONE [Suspect]
     Active Substance: GLATIRAMER ACETATE
     Indication: MULTIPLE SCLEROSIS
     Route: 058
     Dates: start: 201803, end: 201903

REACTIONS (1)
  - Anaplastic large cell lymphoma T- and null-cell types [Not Recovered/Not Resolved]

NARRATIVE: CASE EVENT DATE: 202012
